FAERS Safety Report 16237981 (Version 2)
Quarter: 2019Q2

REPORT INFORMATION
  Report Type: Spontaneous
  Country: US (occurrence: US)
  Receive Date: 20190425
  Receipt Date: 20190603
  Transmission Date: 20190711
  Serious: No
  Sender: FDA-Public Use
  Company Number: US-ASTRAZENECA-2019SE49949

PATIENT
  Age: 12953 Day
  Sex: Female

DRUGS (2)
  1. PULMICORT FLEXHALER [Suspect]
     Active Substance: BUDESONIDE
     Indication: DYSPNOEA
     Dosage: 90 MCG, 1 PUFF, TWO TIMES A DAY
     Route: 055
     Dates: start: 20190323
  2. PULMICORT FLEXHALER [Suspect]
     Active Substance: BUDESONIDE
     Indication: PNEUMONITIS
     Dosage: 90 MCG, 1 PUFF, TWO TIMES A DAY
     Route: 055
     Dates: start: 20190323

REACTIONS (11)
  - Exposure during pregnancy [Unknown]
  - Intentional product misuse [Unknown]
  - Device failure [Unknown]
  - Productive cough [Not Recovered/Not Resolved]
  - Respiratory tract congestion [Unknown]
  - Malaise [Not Recovered/Not Resolved]
  - Cough [Not Recovered/Not Resolved]
  - Off label use [Unknown]
  - Product use in unapproved indication [Unknown]
  - Haemoptysis [Not Recovered/Not Resolved]
  - Product dose omission [Unknown]

NARRATIVE: CASE EVENT DATE: 20190320
